FAERS Safety Report 14872361 (Version 1)
Quarter: 2018Q2

REPORT INFORMATION
  Report Type: Spontaneous
  Country: US (occurrence: US)
  Receive Date: 20180510
  Receipt Date: 20180510
  Transmission Date: 20180711
  Serious: No
  Sender: FDA-Public Use
  Company Number: US-ASTRAZENECA-2018SE49364

PATIENT
  Age: 70 Year
  Sex: Male
  Weight: 95.3 kg

DRUGS (2)
  1. ALBUTEROL/IPRATROPIUM BROMIDE NEBULIZER SOLUTION [Concomitant]
     Indication: CHRONIC OBSTRUCTIVE PULMONARY DISEASE
     Dosage: 0.5 MG/3 MG/3 ML AS REQUIRED
     Route: 055
     Dates: start: 2008
  2. SYMBICORT [Suspect]
     Active Substance: BUDESONIDE\FORMOTEROL FUMARATE DIHYDRATE
     Indication: CHRONIC OBSTRUCTIVE PULMONARY DISEASE
     Dosage: 160/4.5 MCG 2 PUFFS TWICE A DAY
     Route: 055
     Dates: start: 2008

REACTIONS (5)
  - Therapy cessation [Not Recovered/Not Resolved]
  - Dyspnoea [Not Recovered/Not Resolved]
  - Product use issue [Not Recovered/Not Resolved]
  - Productive cough [Not Recovered/Not Resolved]
  - Cough [Not Recovered/Not Resolved]

NARRATIVE: CASE EVENT DATE: 2018
